FAERS Safety Report 16958309 (Version 1)
Quarter: 2019Q4

REPORT INFORMATION
  Report Type: Spontaneous
  Country: CA (occurrence: CA)
  Receive Date: 20191024
  Receipt Date: 20191024
  Transmission Date: 20200122
  Serious: Yes (Disabling)
  Sender: FDA-Public Use
  Company Number: CA-TEVA-2019-CA-1126204

PATIENT
  Age: 71 Year
  Sex: Female

DRUGS (14)
  1. CALCIUM [Concomitant]
     Active Substance: CALCIUM
  2. ELIQUIS [Concomitant]
     Active Substance: APIXABAN
  3. LACTOBACILLUS REUTERI [Concomitant]
     Active Substance: LACTOBACILLUS REUTERI
  4. ONDANSETRON [Concomitant]
     Active Substance: ONDANSETRON
  5. BISOPROLOL [Concomitant]
     Active Substance: BISOPROLOL
  6. GRANULOCYTE COLONY STIMULATING FACTOR (G-CSF) [Concomitant]
  7. METFORMIN [Concomitant]
     Active Substance: METFORMIN HYDROCHLORIDE
  8. MAGNESIUM [Concomitant]
     Active Substance: MAGNESIUM
  9. RAMIPRIL. [Concomitant]
     Active Substance: RAMIPRIL
  10. DOCETAXEL. [Suspect]
     Active Substance: DOCETAXEL
     Indication: BREAST CANCER
     Route: 042
  11. HERCEPTIN [Suspect]
     Active Substance: TRASTUZUMAB
     Indication: BREAST CANCER
     Route: 042
  12. DEXAMETHASONE. [Concomitant]
     Active Substance: DEXAMETHASONE
  13. FUROSEMIDE. [Concomitant]
     Active Substance: FUROSEMIDE
  14. PANTOPRAZOLE [Concomitant]
     Active Substance: PANTOPRAZOLE

REACTIONS (10)
  - Anuria [Not Recovered/Not Resolved]
  - Dialysis [Not Recovered/Not Resolved]
  - Hypotension [Not Recovered/Not Resolved]
  - Oedema peripheral [Not Recovered/Not Resolved]
  - Urine output decreased [Not Recovered/Not Resolved]
  - Diarrhoea [Not Recovered/Not Resolved]
  - Fluid overload [Not Recovered/Not Resolved]
  - Pleural effusion [Not Recovered/Not Resolved]
  - Renal impairment [Not Recovered/Not Resolved]
  - Sepsis [Not Recovered/Not Resolved]
